FAERS Safety Report 25565594 (Version 1)
Quarter: 2025Q3

REPORT INFORMATION
  Report Type: Spontaneous
  Country: US (occurrence: US)
  Receive Date: 20250716
  Receipt Date: 20250716
  Transmission Date: 20251021
  Serious: No
  Sender: GLAUKOS
  Company Number: US-GLK-000659

PATIENT

DRUGS (1)
  1. DEVICE [Suspect]
     Active Substance: DEVICE
     Indication: Product used for unknown indication
     Route: 047

REACTIONS (1)
  - Corneal oedema [Unknown]
